FAERS Safety Report 6728777-0 (Version None)
Quarter: 2010Q2

REPORT INFORMATION
  Report Type: 
  Country: None (occurrence: None)
  Receive Date: 20100517
  Receipt Date: 20100503
  Transmission Date: 20101027
  Serious: Yes (Hospitalization)
  Sender: FDA-Public Use
  Company Number: BE-ABBOTT-10P-013-0641973-00

PATIENT
  Sex: Female

DRUGS (8)
  1. HUMIRA [Suspect]
     Indication: ANKYLOSING SPONDYLITIS
     Dates: start: 20061113, end: 20100322
  2. HUMIRA [Suspect]
     Dates: start: 20100412
  3. CETRIZINE [Concomitant]
     Indication: HYPERSENSITIVITY
  4. FOSAVANCE [Concomitant]
     Indication: OSTEOPOROSIS
  5. LEDERTREXATE [Concomitant]
     Indication: ANKYLOSING SPONDYLITIS
  6. LORAZEPAM [Concomitant]
     Indication: DRUG USE FOR UNKNOWN INDICATION
  7. MENO-FEMINA [Concomitant]
     Indication: DRUG USE FOR UNKNOWN INDICATION
  8. SALAZOPYRINE [Concomitant]
     Indication: ANKYLOSING SPONDYLITIS

REACTIONS (1)
  - SMALL INTESTINAL OBSTRUCTION [None]
